FAERS Safety Report 23551085 (Version 1)
Quarter: 2024Q1

REPORT INFORMATION
  Report Type: Spontaneous
  Country: US (occurrence: US)
  Receive Date: 20240222
  Receipt Date: 20240222
  Transmission Date: 20240410
  Serious: No
  Sender: FDA-Public Use
  Company Number: US-002147023-NVSC2024US037193

PATIENT
  Sex: Female

DRUGS (1)
  1. LEQVIO [Suspect]
     Active Substance: INCLISIRAN SODIUM
     Indication: Low density lipoprotein decreased
     Dosage: UNK UNK, ONCE/SINGLE
     Route: 058
     Dates: start: 20240101, end: 20240215

REACTIONS (4)
  - Lethargy [Unknown]
  - Pruritus [Unknown]
  - Body temperature increased [Unknown]
  - Hot flush [Unknown]
